FAERS Safety Report 11463468 (Version 1)
Quarter: 2015Q3

REPORT INFORMATION
  Report Type: Spontaneous
  Country: US (occurrence: US)
  Receive Date: 20150831
  Receipt Date: 20150831
  Transmission Date: 20151125
  Serious: No
  Sender: FDA-Public Use
  Company Number: US-ELI_LILLY_AND_COMPANY-US201102003419

PATIENT
  Sex: Female

DRUGS (2)
  1. FOCALIN /USA/ [Concomitant]
  2. CYMBALTA [Suspect]
     Active Substance: DULOXETINE HYDROCHLORIDE
     Indication: ANXIETY
     Dosage: 30 MG, UNK
     Dates: start: 20101207, end: 201101

REACTIONS (3)
  - Tourette^s disorder [Not Recovered/Not Resolved]
  - Chronic tic disorder [Not Recovered/Not Resolved]
  - Muscle twitching [Not Recovered/Not Resolved]
